FAERS Safety Report 4840350-8 (Version None)
Quarter: 2005Q4

REPORT INFORMATION
  Report Type: 
  Country: None (occurrence: None)
  Receive Date: 20051025
  Receipt Date: 20050311
  Transmission Date: 20060501
  Serious: Yes (Other)
  Sender: FDA-Public Use
  Company Number: 2005-00559

PATIENT
  Age: 50 Year
  Sex: Female

DRUGS (1)
  1. TUBERSOL [Suspect]
     Indication: TUBERCULIN TEST
     Dosage: YEARLY,I.D.
     Route: 023
     Dates: start: 20050216

REACTIONS (6)
  - HYPERSENSITIVITY [None]
  - INJECTION SITE ERYTHEMA [None]
  - INJECTION SITE NODULE [None]
  - INJECTION SITE REACTION [None]
  - INJECTION SITE SWELLING [None]
  - LYMPHADENITIS [None]
